FAERS Safety Report 15158316 (Version 2)
Quarter: 2022Q1

REPORT INFORMATION
  Report Type: Spontaneous
  Country: NL (occurrence: NL)
  Receive Date: 20180718
  Receipt Date: 20220304
  Transmission Date: 20220424
  Serious: Yes (Other)
  Sender: FDA-Public Use
  Company Number: NL-TEVA-2018-NL-926336

PATIENT
  Age: 77 Year
  Sex: Male

DRUGS (4)
  1. ISONIAZID [Suspect]
     Active Substance: ISONIAZID
     Dosage: 300 MILLIGRAM DAILY;
     Route: 065
  2. BCG VACCINE [Suspect]
     Active Substance: BCG VACCINE
     Indication: Bladder cancer
     Dosage: A TOTAL OF 59 TRAUMATIC INSTILLATIONS
     Route: 043
  3. RIFAMPIN [Suspect]
     Active Substance: RIFAMPIN
     Dosage: 600 MILLIGRAM DAILY;
     Route: 065
  4. ETHAMBUTOL [Suspect]
     Active Substance: ETHAMBUTOL HYDROCHLORIDE
     Dosage: 1600 MILLIGRAM DAILY;
     Route: 065

REACTIONS (4)
  - Hepatotoxicity [Unknown]
  - Pneumonitis [Recovered/Resolved]
  - Hepatitis [Recovered/Resolved]
  - Hilar lymphadenopathy [Recovered/Resolved]
